FAERS Safety Report 13584050 (Version 1)
Quarter: 2017Q2

REPORT INFORMATION
  Report Type: Spontaneous
  Country: US (occurrence: US)
  Receive Date: 20170526
  Receipt Date: 20170526
  Transmission Date: 20170830
  Serious: No
  Sender: FDA-Public Use
  Company Number: US-DRREDDYS-USA/USA/16/0083555

PATIENT
  Sex: Female

DRUGS (2)
  1. RANITIDINE TABLETS 75 MG [Suspect]
     Active Substance: RANITIDINE
     Indication: ULCER
     Route: 048
  2. RANITIDINE TABLETS 75 MG [Suspect]
     Active Substance: RANITIDINE
     Route: 048

REACTIONS (2)
  - Extra dose administered [Unknown]
  - Muscle spasms [Not Recovered/Not Resolved]
